FAERS Safety Report 4546853-8 (Version None)
Quarter: 2005Q1

REPORT INFORMATION
  Report Type: 
  Country: None (occurrence: None)
  Receive Date: 20050105
  Receipt Date: 20041202
  Transmission Date: 20050727
  Serious: Yes (Hospitalization)
  Sender: FDA-Public Use
  Company Number: EWC041241688

PATIENT
  Age: 34 Year
  Sex: Male
  Weight: 43 kg

DRUGS (2)
  1. OLANZAPINE [Suspect]
     Indication: ANXIETY DISORDER
     Dosage: 2.5 MG DAY
     Dates: start: 20040901, end: 20041020
  2. OLANZAPINE [Suspect]
     Indication: DELUSION
     Dosage: 2.5 MG DAY
     Dates: start: 20040901, end: 20041020

REACTIONS (3)
  - DEEP VEIN THROMBOSIS [None]
  - PULMONARY EMBOLISM [None]
  - PYREXIA [None]
